FAERS Safety Report 23680006 (Version 1)
Quarter: 2024Q1

REPORT INFORMATION
  Report Type: Spontaneous
  Country: IS (occurrence: IS)
  Receive Date: 20240327
  Receipt Date: 20240327
  Transmission Date: 20240410
  Serious: Yes (Hospitalization)
  Sender: FDA-Public Use
  Company Number: None

PATIENT
  Age: 65 Year
  Sex: Male

DRUGS (2)
  1. LENVIMA [Suspect]
     Active Substance: LENVATINIB
     Indication: Thyroid cancer
     Dosage: 24 MG A DAY
     Route: 048
     Dates: start: 20200216, end: 2020
  2. LENVIMA [Suspect]
     Active Substance: LENVATINIB
     Dosage: 24 MG A DAY
     Route: 048
     Dates: start: 20200224, end: 20200322

REACTIONS (3)
  - Hypercalcaemia [Recovered/Resolved]
  - Renal failure [Recovered/Resolved]
  - Hypertension [Recovered/Resolved]

NARRATIVE: CASE EVENT DATE: 20200322
